FAERS Safety Report 10487837 (Version 1)
Quarter: 2014Q4

REPORT INFORMATION
  Report Type: Spontaneous
  Country: DE (occurrence: DE)
  Receive Date: 20141001
  Receipt Date: 20141001
  Transmission Date: 20150528
  Serious: Yes (Life-Threatening, Hospitalization, Other)
  Sender: FDA-Public Use
  Company Number: DE-BAYER-2014-144006

PATIENT
  Age: 21 Year
  Sex: Female

DRUGS (7)
  1. KETOPROFEN (SYSTEMIC FORMULATION) [Suspect]
     Active Substance: KETOPROFEN
     Dosage: 1500 MG, ONCE (30 TABLETS)
     Route: 048
  2. GABAPENTIN. [Suspect]
     Active Substance: GABAPENTIN
     Dosage: 16000 MG, ONCE (40 TABLETS)
     Route: 048
  3. TORSEMIDE. [Suspect]
     Active Substance: TORSEMIDE
     Dosage: 500 MG, ONCE (50 TABLETS)
     Route: 048
  4. AMITRIPTYLINE [Suspect]
     Active Substance: AMITRIPTYLINE
     Dosage: 6000 MG, ONCE (60 TABLETS)
     Route: 048
  5. AMLODIPINE [Suspect]
     Active Substance: AMLODIPINE BESYLATE
     Dosage: 300 MG, ONCE (60 TABLETS)
     Route: 048
  6. CARVEDILOL. [Suspect]
     Active Substance: CARVEDILOL
     Dosage: 1750 MG, ONCE (70 TABLETS)
     Route: 048
  7. NICOTINIC ACID [Suspect]
     Active Substance: NIACIN
     Dosage: 28000 MG, ONCE (56 TABLETS)
     Route: 048

REACTIONS (10)
  - Cardiac failure [Recovered/Resolved]
  - Compartment syndrome [None]
  - Nodal rhythm [Recovered/Resolved]
  - Intentional overdose [None]
  - Toxicity to various agents [None]
  - Cardiac arrest [Recovered/Resolved]
  - Sinoatrial block [Recovered/Resolved]
  - Ventricular hypokinesia [Recovered/Resolved]
  - Suicide attempt [None]
  - Femoral artery dissection [None]
